FAERS Safety Report 5032875-X (Version None)
Quarter: 2006Q2

REPORT INFORMATION
  Report Type: 
  Country: None (occurrence: None)
  Receive Date: 20060622
  Receipt Date: 20060619
  Transmission Date: 20061013
  Serious: Yes (Hospitalization)
  Sender: FDA-Public Use
  Company Number: JP-JPN-A200602148

PATIENT
  Age: 38 Year
  Sex: Female

DRUGS (4)
  1. PAXIL [Suspect]
     Indication: DEPRESSION
     Dosage: 10MG SEE DOSAGE TEXT
     Route: 048
     Dates: start: 20060529, end: 20060617
  2. UNKNOWN DRUG [Concomitant]
     Route: 048
  3. MEILAX [Concomitant]
     Route: 048
  4. GASMOTIN [Concomitant]
     Route: 048

REACTIONS (1)
  - SUICIDE ATTEMPT [None]
